FAERS Safety Report 8792991 (Version 1)
Quarter: 2012Q4

REPORT INFORMATION
  Report Type: 
  Country: SE (occurrence: SE)
  Receive Date: 20120918
  Receipt Date: 20120918
  Transmission Date: 20130627
  Serious: Yes (Hospitalization)
  Sender: FDA-Public Use
  Company Number: SE-VERTEX PHARMACEUTICAL INC.-2012-021414

PATIENT
  Sex: Male

DRUGS (11)
  1. INCIVO [Suspect]
     Indication: HEPATITIS C
     Dosage: 375 mg, UNK (^2.3GMD^)
     Route: 048
     Dates: start: 20120425, end: 20120709
  2. INCIVO [Suspect]
     Indication: HEPATIC CIRRHOSIS
  3. PEGASYS [Suspect]
     Indication: HEPATITIS C
     Dosage: 180 ?g, UNK (^180RGW^)
     Route: 058
     Dates: start: 20120425, end: 20120709
  4. PEGASYS [Suspect]
     Indication: HEPATIC CIRRHOSIS
  5. COPEGUS [Suspect]
     Indication: HEPATITIS C
     Dosage: 200 mg, UNK (^1.2GMD^)
     Route: 048
     Dates: start: 20120425, end: 20120709
  6. COPEGUS [Suspect]
     Indication: HEPATIC CIRRHOSIS
  7. CITALOPRAM [Concomitant]
  8. DERMOVAT [Concomitant]
  9. ZYRLEX [Concomitant]
  10. IMOVANE [Concomitant]
  11. DIMOR [Concomitant]

REACTIONS (1)
  - Hepatic failure [Not Recovered/Not Resolved]
